FAERS Safety Report 10351430 (Version 2)
Quarter: 2014Q3

REPORT INFORMATION
  Report Type: Spontaneous
  Country: DE (occurrence: DE)
  Receive Date: 20140730
  Receipt Date: 20140808
  Transmission Date: 20150326
  Serious: Yes (Other)
  Sender: FDA-Public Use
  Company Number: DE-GLAXOSMITHKLINE-D0085027A

PATIENT
  Sex: Male

DRUGS (4)
  1. FENISTIL [Concomitant]
     Active Substance: DIMETHINDENE
     Dosage: 50MG PER DAY
     Route: 065
  2. SOLU-DECORTIN-H [Concomitant]
     Active Substance: PREDNISOLONE HEMISUCCINATE
     Dosage: 250MG PER DAY
     Route: 065
  3. PARACETAMOL [Concomitant]
     Active Substance: ACETAMINOPHEN
     Dosage: 1000MG PER DAY
     Route: 065
  4. ARZERRA [Suspect]
     Active Substance: OFATUMUMAB
     Dosage: 2000MG PER DAY
     Route: 065
     Dates: start: 2014

REACTIONS (1)
  - Neutropenia [Not Recovered/Not Resolved]
